FAERS Safety Report 8451890-7 (Version None)
Quarter: 2012Q2

REPORT INFORMATION
  Report Type: 
  Country: None (occurrence: None)
  Receive Date: 20120620
  Receipt Date: 20120323
  Transmission Date: 20120825
  Serious: No
  Sender: FDA-Public Use
  Company Number: US-VERTEX PHARMACEUTICALS INC.-AE-2012-004192

PATIENT
  Sex: Male
  Weight: 94.8 kg

DRUGS (3)
  1. RIBASPHERE [Concomitant]
     Indication: HEPATITIS C
     Dates: start: 20120201
  2. INCIVEK [Suspect]
     Indication: HEPATITIS C
     Route: 048
     Dates: start: 20120201
  3. PEGASYS [Concomitant]
     Indication: HEPATITIS C
     Dates: start: 20120201

REACTIONS (4)
  - DYSPNOEA [None]
  - NAUSEA [None]
  - BONE PAIN [None]
  - HEADACHE [None]
